FAERS Safety Report 9507284 (Version 1)
Quarter: 2013Q3

REPORT INFORMATION
  Report Type: Spontaneous
  Country: NO (occurrence: NO)
  Receive Date: 20130909
  Receipt Date: 20130909
  Transmission Date: 20140515
  Serious: Yes (Disabling, Other)
  Sender: FDA-Public Use
  Company Number: NO-009507513-1308NOR011475

PATIENT
  Age: 83 Year
  Sex: Female

DRUGS (5)
  1. FOSAMAX [Suspect]
     Indication: OSTEOPOROSIS
     Route: 048
     Dates: start: 200611, end: 20130422
  2. ATACAND [Concomitant]
     Dosage: 16/12,5 MG X 1
  3. SIMVASTATIN [Concomitant]
  4. AMLODIPINE [Concomitant]
  5. SELO-ZOK [Concomitant]

REACTIONS (2)
  - Stress fracture [Recovering/Resolving]
  - Atypical femur fracture [Recovering/Resolving]
